FAERS Safety Report 8051139-3 (Version None)
Quarter: 2012Q1

REPORT INFORMATION
  Report Type: 
  Country: None (occurrence: None)
  Receive Date: 20120117
  Receipt Date: 20120112
  Transmission Date: 20120608
  Serious: Yes (Death)
  Sender: FDA-Public Use
  Company Number: PHHY2012MX003334

PATIENT
  Sex: Female

DRUGS (2)
  1. EXFORGE HCT [Suspect]
     Indication: HYPERTENSION
     Dosage: 1 TABLET (160/5/12.5 MG) DAILY
     Dates: start: 20110701, end: 20111111
  2. ASPIRIN [Concomitant]
     Dosage: UNK UKN, UNK

REACTIONS (2)
  - MYOCARDIAL INFARCTION [None]
  - CARDIAC DISCOMFORT [None]
